FAERS Safety Report 11282292 (Version 1)
Quarter: 2015Q3

REPORT INFORMATION
  Report Type: Spontaneous
  Country: CN (occurrence: CN)
  Receive Date: 20150720
  Receipt Date: 20150720
  Transmission Date: 20151125
  Serious: Yes (Other)
  Sender: FDA-Public Use
  Company Number: CN-CIPLA LTD.-2015CN05802

PATIENT

DRUGS (1)
  1. TOPIRAMATE. [Suspect]
     Active Substance: TOPIRAMATE
     Indication: PARTIAL SEIZURES
     Route: 065

REACTIONS (12)
  - Oedema peripheral [Unknown]
  - Mouth ulceration [Unknown]
  - Chest discomfort [Unknown]
  - Palpitations [Unknown]
  - Upper respiratory tract infection [Unknown]
  - Dysgeusia [Unknown]
  - Renal impairment [Unknown]
  - Bone pain [Unknown]
  - Arthralgia [Unknown]
  - Pyrexia [Unknown]
  - Tinnitus [Unknown]
  - Lacrimation increased [Unknown]
